FAERS Safety Report 11536668 (Version 2)
Quarter: 2015Q3

REPORT INFORMATION
  Report Type: Spontaneous
  Country: SK (occurrence: SK)
  Receive Date: 20150922
  Receipt Date: 20150924
  Transmission Date: 20151125
  Serious: Yes (Other)
  Sender: FDA-Public Use
  Company Number: SK-TEVA-595283ISR

PATIENT
  Age: 72 Year
  Sex: Female

DRUGS (3)
  1. ZOLEDRONIC ACID [Concomitant]
     Active Substance: ZOLEDRONIC ACID
  2. MYOCET [Suspect]
     Active Substance: DOXORUBICIN
     Dosage: 11 CYCLES, 10 CYLES IN MONOTHERAPY
     Dates: start: 201406, end: 201502
  3. CYCLOPHOSPHAMIDE. [Concomitant]
     Active Substance: CYCLOPHOSPHAMIDE
     Dosage: 1 CYCLE
     Dates: start: 201406

REACTIONS (4)
  - Left ventricular dysfunction [Unknown]
  - Metastases to bone [Unknown]
  - Hydrothorax [Unknown]
  - Chest X-ray abnormal [Unknown]

NARRATIVE: CASE EVENT DATE: 201409
